FAERS Safety Report 5142389-4 (Version None)
Quarter: 2006Q4

REPORT INFORMATION
  Report Type: 
  Country: None (occurrence: None)
  Receive Date: 20061102
  Receipt Date: 20061025
  Transmission Date: 20070319
  Serious: Yes (Life-Threatening)
  Sender: FDA-Public Use
  Company Number: CN-ROCHE-468997

PATIENT
  Sex: Female

DRUGS (5)
  1. ROCALTROL [Suspect]
     Indication: FEMUR FRACTURE
     Route: 048
     Dates: start: 20060815, end: 20060915
  2. ROCALTROL [Suspect]
     Route: 048
     Dates: start: 20060915, end: 20060915
  3. NPH INSULIN [Concomitant]
     Route: 042
     Dates: start: 20060815, end: 20060915
  4. ACEI [Concomitant]
     Indication: HYPERTENSION
     Route: 048
     Dates: start: 20060815, end: 20060915
  5. FUROSEMIDE [Concomitant]
     Route: 042
     Dates: start: 20060815, end: 20060915

REACTIONS (1)
  - COMA [None]
